FAERS Safety Report 15295206 (Version 1)
Quarter: 2018Q3

REPORT INFORMATION
  Report Type: Spontaneous
  Country: BR (occurrence: BR)
  Receive Date: 20180820
  Receipt Date: 20180820
  Transmission Date: 20181010
  Serious: Yes (Other)
  Sender: FDA-Public Use
  Company Number: BR-BAYER-2018-150711

PATIENT
  Age: 31 Year
  Sex: Female

DRUGS (1)
  1. YAZ [Suspect]
     Active Substance: DROSPIRENONE\ETHINYL ESTRADIOL
     Indication: CONTRACEPTION
     Dosage: UNK
     Route: 048
     Dates: start: 2010

REACTIONS (7)
  - Amenorrhoea [Not Recovered/Not Resolved]
  - Vaginal haemorrhage [Recovered/Resolved]
  - Pain [Recovered/Resolved]
  - Gestational trophoblastic detachment [Recovered/Resolved]
  - Drug ineffective [None]
  - Pregnancy on oral contraceptive [Not Recovered/Not Resolved]
  - Haemorrhage in pregnancy [Recovered/Resolved]

NARRATIVE: CASE EVENT DATE: 20180611
